FAERS Safety Report 10330683 (Version 1)
Quarter: 2014Q3

REPORT INFORMATION
  Report Type: Report from Study
  Country: BR (occurrence: BR)
  Receive Date: 20140722
  Receipt Date: 20140722
  Transmission Date: 20150326
  Serious: Yes (Other)
  Sender: FDA-Public Use
  Company Number: PHHY2014BR088954

PATIENT
  Sex: Male
  Weight: 63 kg

DRUGS (3)
  1. ZOTEON [Suspect]
     Active Substance: TOBRAMYCIN
     Indication: CYSTIC FIBROSIS
     Dosage: 4 DF, DAILY (CAPSULE)
     Dates: start: 20140607
  2. INSULIN [Concomitant]
     Active Substance: INSULIN NOS
     Indication: BLOOD GLUCOSE ABNORMAL
     Dosage: 4 U, QD (AT LUNCH)
     Dates: start: 201402
  3. PANCREASE MT [Concomitant]
     Active Substance: PANCRELIPASE
     Indication: PANCREATIC DISORDER
     Dosage: 8 TABLETS AT LUNCH AND AT DINNER; 6 DF IN THE OTHER MEALS (4 MEALS, EXCEPTING THE LUNCH AND DINNER

REACTIONS (1)
  - Diabetes mellitus [Unknown]
